FAERS Safety Report 25707951 (Version 1)
Quarter: 2025Q3

REPORT INFORMATION
  Report Type: Spontaneous
  Country: TW (occurrence: TW)
  Receive Date: 20250820
  Receipt Date: 20250820
  Transmission Date: 20251021
  Serious: Yes (Death, Hospitalization)
  Sender: BIOMARIN
  Company Number: TW-BIOMARINAP-TW-2025-168173

PATIENT
  Age: 20 Year
  Sex: Male
  Weight: 48 kg

DRUGS (1)
  1. VIMIZIM [Suspect]
     Active Substance: ELOSULFASE ALFA
     Indication: Mucopolysaccharidosis IV
     Dosage: UNK, QW
     Dates: start: 20151104

REACTIONS (5)
  - Respiratory failure [Fatal]
  - Dyspnoea [Not Recovered/Not Resolved]
  - Oxygen saturation decreased [Not Recovered/Not Resolved]
  - Respiratory distress [Not Recovered/Not Resolved]
  - Hypercapnia [Not Recovered/Not Resolved]

NARRATIVE: CASE EVENT DATE: 20250816
